FAERS Safety Report 7656538-7 (Version None)
Quarter: 2011Q3

REPORT INFORMATION
  Report Type: 
  Country: None (occurrence: None)
  Receive Date: 20110804
  Receipt Date: 20101129
  Transmission Date: 20111222
  Serious: No
  Sender: FDA-Public Use
  Company Number: US-BAUSCH-2010BL006743

PATIENT
  Age: 48 Year
  Sex: Female

DRUGS (4)
  1. OPCON-A [Suspect]
     Indication: EYE PRURITUS
     Route: 047
     Dates: start: 20101128, end: 20101128
  2. OPCON-A [Suspect]
     Indication: LACRIMATION INCREASED
     Route: 047
     Dates: start: 20101128, end: 20101128
  3. OPCON-A [Suspect]
     Route: 047
     Dates: start: 20101128, end: 20101128
  4. OPCON-A [Suspect]
     Route: 047
     Dates: start: 20101128, end: 20101128

REACTIONS (2)
  - MYDRIASIS [None]
  - EYE PAIN [None]
